FAERS Safety Report 9420492 (Version 1)
Quarter: 2013Q3

REPORT INFORMATION
  Report Type: Spontaneous
  Country: US (occurrence: US)
  Receive Date: 20130725
  Receipt Date: 20130725
  Transmission Date: 20140515
  Serious: No
  Sender: FDA-Public Use
  Company Number: US-ABBOTT-13P-163-1041399-00

PATIENT
  Sex: Female
  Weight: 59.93 kg

DRUGS (3)
  1. SYNTHROID [Suspect]
     Indication: AUTOIMMUNE THYROIDITIS
     Dates: end: 2012
  2. SYNTHROID [Suspect]
     Indication: AUTOIMMUNE THYROIDITIS
     Dates: start: 2012, end: 2012
  3. SYNTHROID [Suspect]
     Indication: AUTOIMMUNE THYROIDITIS
     Dates: start: 2012

REACTIONS (7)
  - Thyroid function test abnormal [Unknown]
  - Drug ineffective [Unknown]
  - Muscle spasms [Unknown]
  - Muscle spasms [Unknown]
  - Trichorrhexis [Unknown]
  - Onychoclasis [Unknown]
  - Blood thyroid stimulating hormone increased [Recovered/Resolved]
